FAERS Safety Report 13877670 (Version 1)
Quarter: 2017Q3

REPORT INFORMATION
  Report Type: Report from Study
  Country: US (occurrence: US)
  Receive Date: 20170817
  Receipt Date: 20170817
  Transmission Date: 20171127
  Serious: Yes (Death, Hospitalization)
  Sender: FDA-Public Use
  Company Number: US-EXELIXIS-CABO-17009263

PATIENT
  Sex: Male

DRUGS (14)
  1. COMETRIQ [Suspect]
     Active Substance: CABOZANTINIB S-MALATE
     Indication: PROSTATE CANCER
     Dosage: 60 MG, QD
     Route: 048
     Dates: start: 201612, end: 2017
  2. ELIQUIS [Concomitant]
     Active Substance: APIXABAN
  3. XANAX [Concomitant]
     Active Substance: ALPRAZOLAM
  4. PANTOPRAZOLE SODIUM. [Concomitant]
     Active Substance: PANTOPRAZOLE SODIUM
  5. REGLAN [Concomitant]
     Active Substance: METOCLOPRAMIDE HYDROCHLORIDE
  6. OXYCONTIN [Concomitant]
     Active Substance: OXYCODONE HYDROCHLORIDE
  7. VITAMIN C [Concomitant]
     Active Substance: ASCORBIC ACID
  8. COMETRIQ [Suspect]
     Active Substance: CABOZANTINIB S-MALATE
     Dosage: 60 MG, QD
     Route: 048
     Dates: start: 2017
  9. ZOFRAN [Concomitant]
     Active Substance: ONDANSETRON HYDROCHLORIDE
  10. SENOKOT [Concomitant]
     Active Substance: SENNOSIDES
  11. CALCIUM [Concomitant]
     Active Substance: CALCIUM
  12. VANCOMYCIN [Concomitant]
     Active Substance: VANCOMYCIN
  13. CALCIUM 500+D3 [Concomitant]
  14. DRONABINOL. [Concomitant]
     Active Substance: DRONABINOL

REACTIONS (7)
  - Performance status decreased [Unknown]
  - Death [Fatal]
  - Urosepsis [Unknown]
  - Hip fracture [Recovered/Resolved with Sequelae]
  - Malignant neoplasm progression [Unknown]
  - Off label use [Unknown]
  - Acute kidney injury [Unknown]
